FAERS Safety Report 19140732 (Version 2)
Quarter: 2021Q2

REPORT INFORMATION
  Report Type: Spontaneous
  Country: US (occurrence: US)
  Receive Date: 20210415
  Receipt Date: 20210426
  Transmission Date: 20210717
  Serious: No
  Sender: FDA-Public Use
  Company Number: US-TORRENT-00011030

PATIENT
  Sex: Female

DRUGS (2)
  1. FELODIPINE. [Suspect]
     Active Substance: FELODIPINE
     Indication: BLOOD PRESSURE MEASUREMENT
     Dosage: UNKNOWN
  2. INSULIN [Concomitant]
     Active Substance: INSULIN NOS
     Indication: DIABETES MELLITUS
     Dosage: UNKNOWN

REACTIONS (3)
  - Product taste abnormal [Unknown]
  - Malaise [Unknown]
  - Product quality issue [Unknown]
